FAERS Safety Report 9380189 (Version 1)
Quarter: 2013Q2

REPORT INFORMATION
  Report Type: Spontaneous
  Country: DE (occurrence: None)
  Receive Date: 20130628
  Receipt Date: 20130628
  Transmission Date: 20140414
  Serious: Yes (Disabling)
  Sender: FDA-Public Use
  Company Number: DSM-2013-00593

PATIENT
  Age: 80 Year
  Sex: Female
  Weight: 80 kg

DRUGS (2)
  1. VOCADO [Suspect]
     Indication: HYPERTENSION
     Route: 048
     Dates: start: 20130204, end: 20130617
  2. XARELTO (RIVAROXABAN) (10 MG) (RIVAROXABAN) [Concomitant]

REACTIONS (3)
  - Drug eruption [None]
  - Toxic epidermal necrolysis [None]
  - Oedema [None]
